FAERS Safety Report 6607080-3 (Version None)
Quarter: 2010Q1

REPORT INFORMATION
  Report Type: 
  Country: None (occurrence: None)
  Receive Date: 20100227
  Receipt Date: 20100215
  Transmission Date: 20100710
  Serious: Yes (Death)
  Sender: FDA-Public Use
  Company Number: US-JNJFOC-20100208401

PATIENT
  Sex: Male
  Weight: 80.74 kg

DRUGS (2)
  1. DURAGESIC-100 [Suspect]
     Indication: DRUG USE FOR UNKNOWN INDICATION
     Route: 062
  2. ALPRAZOLAM [Suspect]
     Indication: DRUG USE FOR UNKNOWN INDICATION
     Route: 065

REACTIONS (3)
  - COMPLETED SUICIDE [None]
  - DRUG ADMINISTERED AT INAPPROPRIATE SITE [None]
  - DRUG TOXICITY [None]
